FAERS Safety Report 8336739-5 (Version None)
Quarter: 2012Q2

REPORT INFORMATION
  Report Type: 
  Country: None (occurrence: None)
  Receive Date: 20120504
  Receipt Date: 20111205
  Transmission Date: 20120825
  Serious: Yes (Hospitalization)
  Sender: FDA-Public Use
  Company Number: JP-JNJFOC-20110804599

PATIENT
  Sex: Female
  Weight: 48 kg

DRUGS (23)
  1. METHOTREXATE [Suspect]
     Route: 048
     Dates: start: 20110318, end: 20110707
  2. FOLIAMIN [Concomitant]
     Indication: DRUG INTERACTION
     Route: 048
     Dates: end: 20110807
  3. LOXONIN [Concomitant]
     Indication: RHEUMATOID ARTHRITIS
     Route: 062
     Dates: start: 20081031, end: 20110805
  4. SULFASALAZINE [Concomitant]
     Route: 048
  5. ARASENA-A [Concomitant]
     Route: 061
     Dates: start: 20101224
  6. AZUNOL [Concomitant]
     Route: 049
     Dates: start: 20100319
  7. GOLIMUMAB [Suspect]
     Route: 058
     Dates: start: 20110708, end: 20110708
  8. METHOTREXATE [Suspect]
     Route: 048
     Dates: start: 20110902
  9. CLARITHROMYCIN [Concomitant]
     Indication: PROPHYLAXIS
     Route: 048
  10. BUCILLAMINE [Concomitant]
     Route: 048
  11. GOLIMUMAB [Suspect]
     Route: 058
     Dates: start: 20101224
  12. METHOTREXATE [Suspect]
     Route: 048
     Dates: start: 20110708
  13. VOLTAREN [Concomitant]
     Indication: PYREXIA
     Route: 048
  14. VOLTAREN [Concomitant]
     Indication: INTERVERTEBRAL DISC PROTRUSION
     Route: 048
  15. MUCOSTA [Concomitant]
     Indication: GASTRITIS PROPHYLAXIS
     Route: 048
     Dates: start: 20101029
  16. GOLIMUMAB [Suspect]
     Indication: RHEUMATOID ARTHRITIS
     Route: 058
     Dates: start: 20081128, end: 20101126
  17. METHOTREXATE [Suspect]
     Indication: RHEUMATOID ARTHRITIS
     Route: 048
     Dates: start: 20110805
  18. ALENDRONATE SODIUM [Concomitant]
     Indication: OSTEOPOROSIS
     Route: 048
     Dates: end: 20110805
  19. PRORENAL [Concomitant]
     Indication: INTERVERTEBRAL DISC PROTRUSION
     Route: 048
     Dates: start: 20100810
  20. ACTARIT [Concomitant]
     Route: 048
  21. METHOTREXATE [Suspect]
     Route: 048
     Dates: start: 20081128, end: 20110317
  22. ISODINE GARGLE [Concomitant]
     Indication: PROPHYLAXIS
     Route: 049
  23. ETODOLAC [Concomitant]
     Indication: RHEUMATOID ARTHRITIS
     Route: 048
     Dates: start: 20101029

REACTIONS (1)
  - PNEUMONIA [None]
